FAERS Safety Report 7259681-X (Version None)
Quarter: 2011Q1

REPORT INFORMATION
  Report Type: 
  Country: None (occurrence: None)
  Receive Date: 20110130
  Receipt Date: 20101025
  Transmission Date: 20110831
  Serious: No
  Sender: FDA-Public Use
  Company Number: US-ABBOTT-10P-163-0648140-00

PATIENT
  Sex: Female
  Weight: 65.376 kg

DRUGS (10)
  1. PREDNISONE [Suspect]
     Route: 048
     Dates: start: 20100528
  2. PREDNISONE [Suspect]
     Indication: ARTHRITIS
     Dosage: TAPERING MEDICATION DOWN
     Route: 048
     Dates: start: 20100518, end: 20100520
  3. HUMIRA [Suspect]
     Indication: RHEUMATOID ARTHRITIS
     Route: 058
     Dates: start: 20090101, end: 20100301
  4. PREDNISONE [Suspect]
     Route: 048
     Dates: start: 20100524, end: 20100526
  5. HUMIRA [Suspect]
     Indication: OSTEOARTHRITIS
     Route: 058
     Dates: start: 20100501, end: 20100701
  6. SYNTHROID [Concomitant]
     Indication: HYPOTHYROIDISM
     Route: 048
  7. PREDNISONE [Suspect]
     Route: 048
     Dates: start: 20100520, end: 20100522
  8. PREDNISONE [Suspect]
     Route: 048
     Dates: start: 20100526, end: 20100528
  9. HUMIRA [Suspect]
     Dates: start: 20100501, end: 20100601
  10. PREDNISONE [Suspect]
     Route: 048
     Dates: start: 20100522, end: 20100524

REACTIONS (9)
  - DIZZINESS [None]
  - OEDEMA PERIPHERAL [None]
  - HYPOAESTHESIA [None]
  - RHEUMATOID ARTHRITIS [None]
  - PAIN IN EXTREMITY [None]
  - ARTHRITIS [None]
  - PARAESTHESIA [None]
  - ARTHRALGIA [None]
  - NAUSEA [None]
